FAERS Safety Report 5193302-5 (Version None)
Quarter: 2006Q4

REPORT INFORMATION
  Report Type: 
  Country: None (occurrence: None)
  Receive Date: 20061221
  Receipt Date: 20061206
  Transmission Date: 20070319
  Serious: Yes (Other)
  Sender: FDA-Public Use
  Company Number: 2006JP005130

PATIENT
  Age: 10 Year
  Sex: Male

DRUGS (6)
  1. PROGRAF [Suspect]
     Indication: BONE MARROW TRANSPLANT
  2. FLUDARABINE PHOSPHATE [Concomitant]
  3. CYCLOPHOSPHAMIDE [Concomitant]
  4. ANTITHYMOCYTE IMMUNOBLOBULIN (ANTIHYMOCYTE IMMUNOGLOBULIN) [Concomitant]
  5. METHOTREXATE (METHOTREXATE SODIUM) [Concomitant]
  6. PREDNISOLONE [Concomitant]

REACTIONS (3)
  - CYSTITIS HAEMORRHAGIC [None]
  - CYTOMEGALOVIRUS INFECTION [None]
  - REVERSIBLE POSTERIOR LEUKOENCEPHALOPATHY SYNDROME [None]
